FAERS Safety Report 4391841-8 (Version None)
Quarter: 2004Q3

REPORT INFORMATION
  Report Type: 
  Country: None (occurrence: None)
  Receive Date: 20040701
  Receipt Date: 20040611
  Transmission Date: 20050211
  Serious: Yes (Other)
  Sender: FDA-Public Use
  Company Number: USA040568546

PATIENT
  Age: 68 Year
  Sex: Female

DRUGS (4)
  1. FORTEO [Suspect]
     Indication: OSTEOPOROSIS
     Dosage: 20 UG DAY
     Dates: start: 20030814
  2. CALCIUM WITH VITAMIN D [Concomitant]
  3. FOLIC ACID [Concomitant]
  4. MULTIVITAMIN [Concomitant]

REACTIONS (2)
  - DEHYDRATION [None]
  - HYPERCALCAEMIA [None]
